FAERS Safety Report 4578095-4 (Version None)
Quarter: 2005Q1

REPORT INFORMATION
  Report Type: 
  Country: None (occurrence: None)
  Receive Date: 20050209
  Receipt Date: 20050124
  Transmission Date: 20050727
  Serious: Yes (Death, Hospitalization)
  Sender: FDA-Public Use
  Company Number: FR_050105687

PATIENT
  Age: 35 Year
  Sex: Male

DRUGS (3)
  1. ZYPREXA [Suspect]
     Indication: DELUSION
     Dosage: 20 MG DAY
     Dates: start: 20041201
  2. TERCIAN (CYAMEMAZINE) [Concomitant]
  3. XANAX [Concomitant]

REACTIONS (3)
  - HYPERTHERMIA [None]
  - MALAISE [None]
  - PULMONARY EMBOLISM [None]
